FAERS Safety Report 8115097-5 (Version None)
Quarter: 2012Q1

REPORT INFORMATION
  Report Type: 
  Country: None (occurrence: None)
  Receive Date: 20120118
  Receipt Date: 20120113
  Transmission Date: 20120608
  Serious: Yes (Other)
  Sender: FDA-Public Use
  Company Number: 2012030699

PATIENT
  Age: 67 Year
  Sex: Male

DRUGS (2)
  1. PRIVIGEN [Suspect]
     Indication: CHRONIC INFLAMMATORY DEMYELINATING POLYRADICULONEUROPATHY
     Dosage: 10 G, 100MG/ML INTRAVENOUS (NOT OTHERWISE SPECIFIED)
     Route: 042
     Dates: start: 20111202
  2. LOVENOX [Concomitant]

REACTIONS (3)
  - OFF LABEL USE [None]
  - CHILLS [None]
  - BODY TEMPERATURE INCREASED [None]
